FAERS Safety Report 25742862 (Version 1)
Quarter: 2025Q3

REPORT INFORMATION
  Report Type: Spontaneous
  Country: EU (occurrence: EU)
  Receive Date: 20250830
  Receipt Date: 20250830
  Transmission Date: 20251020
  Serious: Yes (Other)
  Sender: ACCORD
  Company Number: None

PATIENT
  Age: 62 Year
  Sex: Female
  Weight: 56 kg

DRUGS (10)
  1. DOCETAXEL [Suspect]
     Active Substance: DOCETAXEL
     Indication: Laryngeal cancer
     Dates: start: 20250612, end: 20250612
  2. ESOMEPRAZOLE [Suspect]
     Active Substance: ESOMEPRAZOLE
     Indication: Product used for unknown indication
     Dates: start: 20250610, end: 20250721
  3. VALACYCLOVIR HYDROCHLORIDE [Suspect]
     Active Substance: VALACYCLOVIR HYDROCHLORIDE
     Indication: Product used for unknown indication
     Dosage: STRENGTH: 500 MG, COATED TABLET
     Dates: start: 20250610, end: 20250721
  4. CISPLATIN [Suspect]
     Active Substance: CISPLATIN
     Indication: Laryngeal cancer
     Dates: start: 20250610, end: 20250613
  5. FLUOROURACIL [Suspect]
     Active Substance: FLUOROURACIL
     Indication: Laryngeal cancer
     Dosage: STRENGTH: 50 MG/ML, CONCENTRATE FOR SOLUTION FOR INFUSION
     Dates: start: 20250610, end: 20250610
  6. CISPLATIN [Suspect]
     Active Substance: CISPLATIN
     Indication: Laryngeal cancer
     Dates: start: 20250630, end: 20250703
  7. DOCETAXEL [Suspect]
     Active Substance: DOCETAXEL
     Indication: Laryngeal cancer
     Dates: start: 20250702, end: 20250702
  8. FLUOROURACIL [Suspect]
     Active Substance: FLUOROURACIL
     Indication: Laryngeal cancer
     Dosage: STRENGTH: 50 MG/ML, CONCENTRATE FOR SOLUTION FOR INFUSION
     Dates: start: 20250612, end: 20250612
  9. FLUOROURACIL [Suspect]
     Active Substance: FLUOROURACIL
     Indication: Laryngeal cancer
     Dosage: STRENGTH: 50 MG/ML, CONCENTRATE FOR SOLUTION FOR INFUSION
     Dates: start: 20250630, end: 20250630
  10. FLUOROURACIL [Suspect]
     Active Substance: FLUOROURACIL
     Indication: Laryngeal cancer
     Dosage: STRENGTH: 50 MG/ML, CONCENTRATE FOR SOLUTION FOR INFUSION
     Dates: start: 20250702, end: 20250702

REACTIONS (2)
  - Hepatic cytolysis [Not Recovered/Not Resolved]
  - Cholestasis [Not Recovered/Not Resolved]

NARRATIVE: CASE EVENT DATE: 20250717
